FAERS Safety Report 15146299 (Version 2)
Quarter: 2018Q3

REPORT INFORMATION
  Report Type: Spontaneous
  Country: US (occurrence: US)
  Receive Date: 20180715
  Receipt Date: 20180913
  Transmission Date: 20181010
  Serious: No
  Sender: FDA-Public Use
  Company Number: US-JNJFOC-20180634304

PATIENT
  Age: 51 Year
  Sex: Female

DRUGS (2)
  1. WOMENS ROGAINE UNSCENTED [Suspect]
     Active Substance: MINOXIDIL
     Indication: ALOPECIA
     Route: 061
     Dates: end: 20180615
  2. WOMENS ROGAINE UNSCENTED [Suspect]
     Active Substance: MINOXIDIL
     Indication: ALOPECIA
     Dosage: GOLF BALL SIZE PILE OF FOAM
     Route: 061
     Dates: start: 201709

REACTIONS (8)
  - Pruritus [Recovered/Resolved]
  - Rash pustular [Recovered/Resolved]
  - Urticaria [Recovered/Resolved]
  - Inappropriate schedule of drug administration [Unknown]
  - Skin irritation [Recovered/Resolved]
  - Erythema [Recovered/Resolved]
  - Incorrect dose administered [Unknown]
  - Skin warm [Recovered/Resolved]

NARRATIVE: CASE EVENT DATE: 201709
